FAERS Safety Report 4670232-6 (Version None)
Quarter: 2005Q2

REPORT INFORMATION
  Report Type: 
  Country: None (occurrence: None)
  Receive Date: 20050520
  Receipt Date: 20050502
  Transmission Date: 20051028
  Serious: Yes (Death, Life-Threatening, Hospitalization)
  Sender: FDA-Public Use
  Company Number: 214516

PATIENT
  Age: 81 Year
  Sex: Male

DRUGS (4)
  1. BEVACIZUMAB (BEVACIZUMAB) PWDR + SOLVENT, INFUSION SOLN, 100MG [Suspect]
     Indication: COLORECTAL CANCER
     Dosage: 10 MG/KG, Q2W, INTRAVENOUS
     Route: 042
     Dates: start: 20030121, end: 20030121
  2. OXALIPLATIN (OXALIPLATIN) [Suspect]
     Indication: COLORECTAL CANCER
     Dosage: 85 MG/KG, Q2W, INTRAVENOUS
     Route: 042
     Dates: start: 20030121, end: 20030121
  3. CALCIUM LEUCOVORIN (LEUCOVORIN CALCIUM) [Suspect]
     Indication: COLORECTAL CANCER
     Dosage: 200 MG/KG, Q2W, INTRAVENOUS
     Route: 042
     Dates: start: 20030121, end: 20030121
  4. FLUOROURACIL [Suspect]
     Indication: COLORECTAL CANCER
     Dosage: 400 MG/KG, Q2W, INTRAVENOUS
     Route: 042
     Dates: start: 20030121, end: 20030121

REACTIONS (12)
  - ARRHYTHMIA SUPRAVENTRICULAR [None]
  - ASPIRATION [None]
  - ATRIAL FIBRILLATION [None]
  - DISEASE PROGRESSION [None]
  - HYPOTENSION [None]
  - LOSS OF CONSCIOUSNESS [None]
  - MYOCARDIAL ISCHAEMIA [None]
  - NAUSEA [None]
  - NEUTROPENIA [None]
  - PLEURAL EFFUSION [None]
  - SUPRAVENTRICULAR TACHYCARDIA [None]
  - VOMITING [None]
